FAERS Safety Report 17856738 (Version 1)
Quarter: 2020Q2

REPORT INFORMATION
  Report Type: Spontaneous
  Country: US (occurrence: US)
  Receive Date: 20200603
  Receipt Date: 20200603
  Transmission Date: 20200714
  Serious: No
  Sender: FDA-Public Use
  Company Number: US-PFIZER INC-2020216572

PATIENT
  Sex: Female
  Weight: 84.81 kg

DRUGS (7)
  1. CALAN SR [Suspect]
     Active Substance: VERAPAMIL HYDROCHLORIDE
     Dosage: 260 MG, DAILY
  2. CLONIDINE. [Suspect]
     Active Substance: CLONIDINE
     Indication: BLOOD PRESSURE ABNORMAL
     Dosage: 0.01 MG, 3X/DAY
     Route: 048
     Dates: start: 202003
  3. CLONIDINE. [Suspect]
     Active Substance: CLONIDINE
     Dosage: 0.01 MG, 2X/DAY
     Route: 048
  4. CALAN SR [Suspect]
     Active Substance: VERAPAMIL HYDROCHLORIDE
     Dosage: 120 MG, 3X/DAY (ONE IN THE MORNING, ONE IN THE LATE AFTERNOON AND ONE BEFORE BED)
     Route: 048
  5. CALAN SR [Suspect]
     Active Substance: VERAPAMIL HYDROCHLORIDE
     Indication: BLOOD PRESSURE ABNORMAL
     Dosage: 240 MG
  6. PLAVIX [Concomitant]
     Active Substance: CLOPIDOGREL BISULFATE
     Indication: STENT PLACEMENT
     Dosage: 75 MG, 1X/DAY (IN THE EVENING)
     Route: 048
     Dates: start: 200907
  7. AMOXICILLIN. [Concomitant]
     Active Substance: AMOXICILLIN
     Dosage: UNK
     Dates: start: 2019

REACTIONS (6)
  - Contraindicated product administered [Unknown]
  - Reaction to excipient [Unknown]
  - Allergic reaction to excipient [Unknown]
  - Blood pressure increased [Unknown]
  - Heart rate decreased [Unknown]
  - Drug ineffective [Unknown]

NARRATIVE: CASE EVENT DATE: 201910
